FAERS Safety Report 9579509 (Version 2)
Quarter: 2013Q4

REPORT INFORMATION
  Report Type: Spontaneous
  Country: US (occurrence: US)
  Receive Date: 20131001
  Receipt Date: 20131001
  Transmission Date: 20140711
  Serious: No
  Sender: FDA-Public Use
  Company Number: US-AMGEN-USASP2013013280

PATIENT
  Age: 47 Year
  Sex: Male
  Weight: 99.77 kg

DRUGS (9)
  1. ENBREL [Suspect]
     Indication: RHEUMATOID ARTHRITIS
     Dosage: 50 MG, QWK
     Route: 058
  2. ALLOPURINOL [Concomitant]
     Dosage: 100 MG, UNK
  3. LEVOTHYROXIN [Concomitant]
     Dosage: 100 MUG, UNK
  4. PREDNISONE [Concomitant]
     Dosage: 10 MG, UNK
  5. VITAMIN D                          /00107901/ [Concomitant]
     Dosage: 400 UNIT, UNK
  6. ALBUTEROL                          /00139501/ [Concomitant]
     Dosage: 2 MG, UNK
  7. SYMBICORT [Concomitant]
     Dosage: UNK,160-4.5
  8. HYDROXYCHLOROQUINE [Concomitant]
     Dosage: 200 MG, UNK
  9. ALEVE [Concomitant]
     Dosage: 220 MG, UNK

REACTIONS (2)
  - Nasopharyngitis [Not Recovered/Not Resolved]
  - Sinusitis [Not Recovered/Not Resolved]
